FAERS Safety Report 10612070 (Version 3)
Quarter: 2015Q1

REPORT INFORMATION
  Report Type: Spontaneous
  Country: US (occurrence: US)
  Receive Date: 20141126
  Receipt Date: 20150107
  Transmission Date: 20150720
  Serious: Yes (Hospitalization, Other)
  Sender: FDA-Public Use
  Company Number: US-AMGEN-USASP2014091265

PATIENT
  Age: 58 Year
  Sex: Female

DRUGS (1)
  1. ENBREL [Suspect]
     Active Substance: ETANERCEPT
     Indication: RHEUMATOID ARTHRITIS
     Dosage: 40 MG, EVERY TWO WEEKS
     Route: 065
     Dates: start: 2008, end: 2012

REACTIONS (6)
  - Wheezing [Recovered/Resolved]
  - Coma [Recovered/Resolved]
  - Food poisoning [Not Recovered/Not Resolved]
  - Nasopharyngitis [Recovered/Resolved]
  - Abasia [Recovered/Resolved]
  - Pneumonia pneumococcal [Recovered/Resolved]

NARRATIVE: CASE EVENT DATE: 20120318
